FAERS Safety Report 4758989-7 (Version None)
Quarter: 2005Q3

REPORT INFORMATION
  Report Type: 
  Country: None (occurrence: None)
  Receive Date: 20050826
  Receipt Date: 20050810
  Transmission Date: 20060218
  Serious: Yes (Hospitalization)
  Sender: FDA-Public Use
  Company Number: DSA_26905_2005

PATIENT
  Age: 65 Year
  Sex: Male

DRUGS (12)
  1. DILTIAZEM [Suspect]
     Indication: HEART RATE INCREASED
     Dosage: DF
     Dates: start: 20050728
  2. TIKOSYN [Suspect]
     Indication: ATRIAL FLUTTER
     Dosage: DR
     Dates: start: 20050501, end: 20050101
  3. TIKOSYN [Suspect]
     Indication: ATRIAL FLUTTER
     Dosage: 125 DF BID
     Dates: start: 20050101
  4. AMOXICILLIN [Suspect]
     Indication: URINARY TRACT INFECTION
     Dosage: DF
     Dates: start: 20050701, end: 20050701
  5. PROTONIX [Concomitant]
  6. COLCHICINE [Concomitant]
  7. ASPIRIN [Concomitant]
  8. GLUCOSAMINE CHONDROITIN [Concomitant]
  9. FISH OIL [Concomitant]
  10. MULTI-VITAMINS [Concomitant]
  11. CALCIUM GLUCONATE [Concomitant]
  12. COUMADIN [Concomitant]

REACTIONS (4)
  - ATRIAL FLUTTER [None]
  - DISEASE RECURRENCE [None]
  - DRUG INEFFECTIVE [None]
  - URINARY TRACT INFECTION [None]
